FAERS Safety Report 24632443 (Version 2)
Quarter: 2024Q4

REPORT INFORMATION
  Report Type: Report from Study
  Country: CA (occurrence: CA)
  Receive Date: 20241118
  Receipt Date: 20241120
  Transmission Date: 20250114
  Serious: Yes (Other)
  Sender: DAIICHI
  Company Number: CA-AstraZeneca-2024A155132

PATIENT
  Sex: Female
  Weight: 55.3 kg

DRUGS (2)
  1. ENHERTU [Suspect]
     Active Substance: FAM-TRASTUZUMAB DERUXTECAN-NXKI
     Indication: HER2 positive breast cancer
     Dosage: 4.4 MG/KG, ONCE EVERY 3 WK (DOSE TO BE INFUSED ROUNDED 243MG CYCLE FREQUENCY)
     Route: 048
     Dates: start: 20211230
  2. ENHERTU [Suspect]
     Active Substance: FAM-TRASTUZUMAB DERUXTECAN-NXKI
     Dosage: 306 MG, ONCE EVERY 3 WK (DOSE TO BE INFUSED ROUNDED 243MG CYCLE FREQUENCY )
     Route: 048
     Dates: start: 20211230

REACTIONS (3)
  - Malignant neoplasm progression [Unknown]
  - Thrombocytopenia [Unknown]
  - Thrombocytosis [Unknown]
